FAERS Safety Report 4844817-8 (Version None)
Quarter: 2005Q4

REPORT INFORMATION
  Report Type: 
  Country: None (occurrence: None)
  Receive Date: 20051201
  Receipt Date: 20051201
  Transmission Date: 20060501
  Serious: Yes (Hospitalization, Other)
  Sender: FDA-Public Use
  Company Number: None

PATIENT
  Sex: Female
  Weight: 75.1 kg

DRUGS (3)
  1. CYTARABINE [Suspect]
     Indication: ACUTE MYELOID LEUKAEMIA
     Dosage: SEE IMAGE
     Dates: start: 20040628
  2. CYTARABINE [Suspect]
     Indication: ACUTE MYELOID LEUKAEMIA
     Dosage: SEE IMAGE
     Dates: start: 20040704
  3. G-CSF (FILGRASTIM, AMGEN) [Suspect]
     Dosage: SEE IMAGE
     Dates: start: 20040714

REACTIONS (7)
  - ACUTE SINUSITIS [None]
  - ARTHRALGIA [None]
  - FACIAL PALSY [None]
  - HEADACHE [None]
  - INFUSION RELATED REACTION [None]
  - PHOTOPHOBIA [None]
  - STAPHYLOCOCCAL INFECTION [None]
